FAERS Safety Report 9147743 (Version 2)
Quarter: 2013Q2

REPORT INFORMATION
  Report Type: Report from Study
  Country: AR (occurrence: AR)
  Receive Date: 20130307
  Receipt Date: 20130530
  Transmission Date: 20140414
  Serious: Yes (Hospitalization)
  Sender: FDA-Public Use
  Company Number: PHHY2013AR018960

PATIENT
  Sex: Male

DRUGS (3)
  1. TOBI PODHALER [Suspect]
     Indication: CYSTIC FIBROSIS
     Dosage: 1 DF, QD
     Dates: start: 201209, end: 201209
  2. TOBI PODHALER [Suspect]
     Dosage: 2 DF, BID
     Dates: start: 201209, end: 201209
  3. TOBI [Suspect]
     Indication: CYSTIC FIBROSIS
     Dosage: UNK UKN, UNK
     Route: 048
     Dates: start: 1999

REACTIONS (5)
  - Bronchospasm [Recovered/Resolved]
  - Feeling abnormal [Recovered/Resolved]
  - Dyspnoea [Recovered/Resolved]
  - Asphyxia [Recovered/Resolved]
  - Hypersensitivity [Recovered/Resolved]
